FAERS Safety Report 8549242-4 (Version None)
Quarter: 2012Q3

REPORT INFORMATION
  Report Type: 
  Country: None (occurrence: None)
  Receive Date: 20120730
  Receipt Date: 20120725
  Transmission Date: 20120928
  Serious: Yes (Hospitalization)
  Sender: FDA-Public Use
  Company Number: PHHO2011US03989

PATIENT
  Sex: Male
  Weight: 104 kg

DRUGS (13)
  1. TACROLIMUS [Concomitant]
     Indication: RENAL TRANSPLANT
     Dosage: 1 MG, BID
     Dates: start: 20110225
  2. PLAVIX [Concomitant]
     Indication: CARDIAC DISORDER
     Dosage: 75 MG, QD
     Dates: start: 20080707
  3. CERTICAN [Suspect]
     Indication: RENAL TRANSPLANT
     Dosage: 0.75 MG, BID
     Dates: start: 20110220
  4. COREG [Concomitant]
     Indication: CARDIAC DISORDER
     Dosage: 3.125 MG, BID
     Dates: start: 20110222
  5. FOLIC ACID [Concomitant]
     Dosage: 1 MG, QD
     Dates: start: 20080707
  6. PRILOSEC [Concomitant]
     Dosage: 20 MG, QD
  7. VALCYTE [Concomitant]
     Dosage: 450 MG, QD
  8. MEDROL [Concomitant]
     Dosage: 28 MG, QD
  9. NOVOLOG [Concomitant]
     Dosage: 15 UNITS W/MEALS
  10. ALLOPURINOL [Concomitant]
     Indication: PROPHYLAXIS
     Dosage: 100 MG, QD
     Dates: start: 20080707
  11. ZOCOR [Concomitant]
     Dosage: 40 MG, QD
  12. ASPIRIN [Concomitant]
     Dosage: 325 MG, QD
     Dates: start: 20110222
  13. HUMAN INSULIN [Concomitant]
     Indication: DIABETES MELLITUS
     Dosage: 30 UNITS MORNING AND 18 UNITS EVENING
     Dates: start: 20110222

REACTIONS (2)
  - CONCOMITANT DISEASE PROGRESSION [None]
  - ACUTE MYOCARDIAL INFARCTION [None]
